FAERS Safety Report 13137020 (Version 2)
Quarter: 2017Q1

REPORT INFORMATION
  Report Type: Spontaneous
  Country: US (occurrence: US)
  Receive Date: 20170123
  Receipt Date: 20170206
  Transmission Date: 20170428
  Serious: Yes (Other)
  Sender: FDA-Public Use
  Company Number: US-009507513-1701USA009710

PATIENT
  Age: 39 Year
  Sex: Female

DRUGS (1)
  1. HYDROCORTONE [Suspect]
     Active Substance: HYDROCORTISONE
     Route: 048

REACTIONS (1)
  - Diabetes insipidus [Unknown]
